FAERS Safety Report 5858346-6 (Version None)
Quarter: 2008Q3

REPORT INFORMATION
  Report Type: 
  Country: None (occurrence: None)
  Receive Date: 20080826
  Receipt Date: 20080819
  Transmission Date: 20090109
  Serious: Yes (Disabling)
  Sender: FDA-Public Use
  Company Number: PHHY2008PE17757

PATIENT
  Age: 66 Year
  Sex: Female

DRUGS (2)
  1. ACLASTA [Suspect]
     Indication: OSTEOPOROSIS
     Dosage: 5MG/100 ML, 1 AMPOULE
     Route: 042
     Dates: start: 20080807, end: 20080807
  2. ANALGESICS [Concomitant]

REACTIONS (6)
  - ARTHRITIS REACTIVE [None]
  - DIARRHOEA [None]
  - INFLAMMATION [None]
  - MUSCULOSKELETAL PAIN [None]
  - PAIN IN EXTREMITY [None]
  - PYREXIA [None]
